FAERS Safety Report 4890328-3 (Version None)
Quarter: 2005Q4

REPORT INFORMATION
  Report Type: 
  Country: None (occurrence: None)
  Receive Date: 20051216
  Receipt Date: 20050808
  Transmission Date: 20060501
  Serious: No
  Sender: FDA-Public Use
  Company Number: USA0508104852

PATIENT
  Age: 56 Year
  Sex: Male

DRUGS (14)
  1. CIALIS [Suspect]
     Indication: ERECTILE DYSFUNCTION
     Dosage: 10 MG/1 AS NEEDED
     Dates: start: 20050101
  2. SYNTHROID [Concomitant]
  3. DIOVAN /SCH/(VALSARTAN) [Concomitant]
  4. TRICOR [Concomitant]
  5. ASPIRIN [Concomitant]
  6. WELLBUTRIN SR [Concomitant]
  7. HYTRIN [Concomitant]
  8. MINOXIDIL [Concomitant]
  9. TRAZODONE [Concomitant]
  10. SAW PALMETTO [Concomitant]
  11. SOMA [Concomitant]
  12. FIORINAL W/CODEINE [Concomitant]
  13. NIACIN [Concomitant]
  14. DEMADEX [Concomitant]

REACTIONS (4)
  - BACK PAIN [None]
  - MUSCLE SPASMS [None]
  - MUSCULOSKELETAL STIFFNESS [None]
  - PAIN [None]
